FAERS Safety Report 15642736 (Version 1)
Quarter: 2018Q4

REPORT INFORMATION
  Report Type: Spontaneous
  Country: US (occurrence: US)
  Receive Date: 20181121
  Receipt Date: 20181121
  Transmission Date: 20190205
  Serious: No
  Sender: FDA-Public Use
  Company Number: US-TEVA-2018-US-976262

PATIENT
  Sex: Female

DRUGS (1)
  1. MUPIROCIN OINTMENT [Suspect]
     Active Substance: MUPIROCIN
     Indication: RASH
     Dosage: APPLIED THIS PRODUCT AROUND HER EYES AND ON HER NOSE
     Route: 065
     Dates: start: 20181108, end: 20181109

REACTIONS (4)
  - Incorrect route of product administration [Unknown]
  - Application site erythema [Unknown]
  - Application site pruritus [Unknown]
  - Application site pain [Unknown]

NARRATIVE: CASE EVENT DATE: 20181108
